FAERS Safety Report 13695126 (Version 1)
Quarter: 2017Q2

REPORT INFORMATION
  Report Type: Spontaneous
  Country: US (occurrence: US)
  Receive Date: 20170627
  Receipt Date: 20170627
  Transmission Date: 20170830
  Serious: Yes (Other)
  Sender: FDA-Public Use
  Company Number: US-EGALET US INC-US-2017EGA000201

PATIENT

DRUGS (4)
  1. SPRIX [Suspect]
     Active Substance: KETOROLAC TROMETHAMINE
     Indication: MYALGIA
     Dosage: 1 SPRAY (15.75 MG) IN BOTH NOSTRILS EVERY 6 HRS
     Route: 045
     Dates: start: 20170126, end: 20170126
  2. WELLBUTRIN [Concomitant]
     Active Substance: BUPROPION HYDROCHLORIDE
     Indication: PRODUCT USED FOR UNKNOWN INDICATION
     Dosage: UNK
     Route: 065
  3. SPRIX [Suspect]
     Active Substance: KETOROLAC TROMETHAMINE
     Indication: BACK PAIN
     Dosage: 1 SPRAY (15.75 MG) IN BOTH NOSTRILS EVERY 8 HRS
     Route: 045
     Dates: start: 20170127, end: 20170129
  4. HYSINGLA ER [Concomitant]
     Active Substance: HYDROCODONE BITARTRATE
     Indication: PRODUCT USED FOR UNKNOWN INDICATION
     Dosage: UNK
     Route: 065

REACTIONS (3)
  - Drug ineffective [Unknown]
  - Nasal discomfort [Unknown]
  - Epistaxis [Not Recovered/Not Resolved]

NARRATIVE: CASE EVENT DATE: 20170126
